FAERS Safety Report 4485745-X (Version None)
Quarter: 2004Q4

REPORT INFORMATION
  Report Type: 
  Country: None (occurrence: None)
  Receive Date: 20041026
  Receipt Date: 20041018
  Transmission Date: 20050328
  Serious: Yes (Other)
  Sender: FDA-Public Use
  Company Number: US-SOLVAY-00204003735

PATIENT
  Age: 26 Year
  Sex: Male

DRUGS (3)
  1. ANADROL [Suspect]
     Indication: ILL-DEFINED DISORDER
  2. DECA-DURABOLIN [Suspect]
     Indication: ILL-DEFINED DISORDER
     Dosage: DAILY DOSE:  UNKNOWN
     Route: 065
  3. TESTOSTERONE CYPIONATE [Suspect]
     Indication: ILL-DEFINED DISORDER
     Dosage: DAILY DOSE:  UNKNOWN
     Route: 065

REACTIONS (3)
  - BLOOD PRESSURE INCREASED [None]
  - EXCITABILITY [None]
  - HEADACHE [None]
